FAERS Safety Report 13845155 (Version 1)
Quarter: 2017Q3

REPORT INFORMATION
  Report Type: Spontaneous
  Country: US (occurrence: US)
  Receive Date: 20170808
  Receipt Date: 20170808
  Transmission Date: 20171127
  Serious: No
  Sender: FDA-Public Use
  Company Number: PHEH2017US023590

PATIENT
  Sex: Female
  Weight: 81.63 kg

DRUGS (1)
  1. DEXTROAMPHET SACCHARAT, AMPHET ASPARTATE, DEXTROAMPHET SULFATE AND AMPHET SULFAT [Suspect]
     Active Substance: AMPHETAMINE ASPARTATE\AMPHETAMINE SULFATE\DEXTROAMPHETAMINE SACCHARATE\DEXTROAMPHETAMINE SULFATE
     Indication: ATTENTION DEFICIT/HYPERACTIVITY DISORDER
     Dosage: 3 DF, BID
     Route: 065

REACTIONS (7)
  - Sleep disorder [Unknown]
  - Paranoia [Unknown]
  - Hypervigilance [Unknown]
  - Hallucination [Unknown]
  - Anxiety [Unknown]
  - Hallucination, auditory [Unknown]
  - Discomfort [Unknown]
